FAERS Safety Report 17473303 (Version 1)
Quarter: 2020Q1

REPORT INFORMATION
  Report Type: Spontaneous
  Country: US (occurrence: US)
  Receive Date: 20200218
  Receipt Date: 20200218
  Transmission Date: 20200409
  Serious: No
  Sender: FDA-Public Use
  Company Number: None

PATIENT
  Age: 51 Year
  Sex: Female

DRUGS (1)
  1. LISINOPRIL TAB 10MG OPTUMRX DR. JOVANNA MORRISON [Suspect]
     Active Substance: LISINOPRIL
     Route: 048
     Dates: start: 201902, end: 201902

REACTIONS (3)
  - Dyspnoea [None]
  - Hypersensitivity [None]
  - Muscle spasms [None]

NARRATIVE: CASE EVENT DATE: 20190218
